FAERS Safety Report 8519945-6 (Version None)
Quarter: 2012Q2

REPORT INFORMATION
  Report Type: 
  Country: None (occurrence: None)
  Receive Date: 20120406
  Receipt Date: 20090731
  Transmission Date: 20120825
  Serious: Yes (Hospitalization, Other)
  Sender: FDA-Public Use
  Company Number: PHEH2009US08647

PATIENT
  Sex: Male

DRUGS (3)
  1. TASIGNA [Suspect]
     Indication: CHRONIC MYELOID LEUKAEMIA
     Dosage: 400 MG, Q12H, ORAL 200 MG, Q12H, ORAL
     Route: 048
     Dates: start: 20090714
  2. LASIX [Concomitant]
  3. COUMADIN [Concomitant]

REACTIONS (4)
  - LIPASE INCREASED [None]
  - AMYLASE INCREASED [None]
  - PANCREATITIS [None]
  - ACUTE ABDOMEN [None]
